FAERS Safety Report 5707073-4 (Version None)
Quarter: 2008Q2

REPORT INFORMATION
  Report Type: 
  Country: None (occurrence: None)
  Receive Date: 20080416
  Receipt Date: 20080311
  Transmission Date: 20081010
  Serious: Yes (Life-Threatening, Hospitalization)
  Sender: FDA-Public Use
  Company Number: B0516940A

PATIENT
  Age: 45 Year
  Sex: Male

DRUGS (2)
  1. ZINACEF [Suspect]
     Dosage: 1.5G PER DAY
     Route: 042
     Dates: start: 20080305, end: 20080307
  2. QING KAI LING [Concomitant]
     Indication: DRUG USE FOR UNKNOWN INDICATION
     Route: 065

REACTIONS (4)
  - BODY TEMPERATURE INCREASED [None]
  - CHILLS [None]
  - DISSEMINATED INTRAVASCULAR COAGULATION [None]
  - MULTI-ORGAN FAILURE [None]
